FAERS Safety Report 9230718 (Version 1)
Quarter: 2013Q2

REPORT INFORMATION
  Report Type: Spontaneous
  Country: AU (occurrence: None)
  Receive Date: 20130411
  Receipt Date: 20130411
  Transmission Date: 20140414
  Serious: Yes (Hospitalization)
  Sender: FDA-Public Use
  Company Number: 2013000082

PATIENT
  Age: 77 Year
  Sex: Male

DRUGS (6)
  1. ACEON (PERINDOPRIL ERBUMINE) TABLET [Suspect]
     Indication: PRODUCT USED FOR UNKNOWN INDICATION
  2. ASPIRIN (ACETYLSALICYLIC ACID) [Suspect]
     Indication: PRODUCT USED FOR UNKNOWN INDICATION
     Dates: end: 291210
  3. CARVEDILOL HYDROCHLORIDE [Suspect]
     Indication: PRODUCT USED FOR UNKNOWN INDICATION
  4. CLOPIDOGREL (CLOPIDOGREL) [Suspect]
     Indication: PRODUCT USED FOR UNKNOWN INDICATION
  5. CRESTOR [Suspect]
     Indication: PRODUCT USED FOR UNKNOWN INDICATION
  6. XARELTO (RIVAROXABAN) [Suspect]
     Indication: ATRIAL FIBRILLATION
     Route: 048
     Dates: start: 20120704

REACTIONS (7)
  - Orthopnoea [None]
  - Left ventricular dysfunction [None]
  - Dyspnoea exertional [None]
  - Ejection fraction decreased [None]
  - Acute pulmonary oedema [None]
  - Ischaemic cardiomyopathy [None]
  - Renal impairment [None]
